FAERS Safety Report 6020639-X (Version None)
Quarter: 2008Q4

REPORT INFORMATION
  Report Type: 
  Country: None (occurrence: None)
  Receive Date: 20081222
  Receipt Date: 20081209
  Transmission Date: 20090506
  Serious: Yes (Hospitalization)
  Sender: FDA-Public Use
  Company Number: 230001K08CHN

PATIENT

DRUGS (2)
  1. REBIF [Suspect]
  2. STEROIDS(CORTICOSTEROIDS FOR SYSTEMIC USE) [Concomitant]

REACTIONS (2)
  - APPENDICITIS PERFORATED [None]
  - BACTERIAL INFECTION [None]
